FAERS Safety Report 17442353 (Version 2)
Quarter: 2020Q2

REPORT INFORMATION
  Report Type: Not Available
  Country: US (occurrence: US)
  Receive Date: 20200220
  Receipt Date: 20200401
  Transmission Date: 20200713
  Serious: No
  Sender: FDA-Public Use
  Company Number: US-NEUROCRINE BIOSCIENCES INC.-2020NBI00497

PATIENT
  Sex: Male

DRUGS (2)
  1. INGREZZA [Suspect]
     Active Substance: VALBENAZINE
     Indication: TARDIVE DYSKINESIA
     Route: 048
     Dates: start: 20200114, end: 20200121
  2. INGREZZA [Suspect]
     Active Substance: VALBENAZINE
     Route: 048
     Dates: start: 20200122

REACTIONS (13)
  - Erectile dysfunction [Unknown]
  - Amnesia [Unknown]
  - Somnolence [Unknown]
  - Depression [Unknown]
  - Insomnia [Unknown]
  - Cognitive disorder [Unknown]
  - Delusion [Unknown]
  - Speech disorder [Unknown]
  - Dysphagia [Unknown]
  - Hypophagia [Unknown]
  - Gait disturbance [Unknown]
  - Asthenia [Unknown]
  - Balance disorder [Unknown]

NARRATIVE: CASE EVENT DATE: 2020
